FAERS Safety Report 12088464 (Version 1)
Quarter: 2016Q1

REPORT INFORMATION
  Report Type: Spontaneous
  Country: US (occurrence: None)
  Receive Date: 20160216
  Receipt Date: 20160216
  Transmission Date: 20160526
  Serious: Yes (Other)
  Sender: FDA-Public Use
  Company Number: None

PATIENT
  Age: 57 Year

DRUGS (4)
  1. PRILOSEC [Concomitant]
     Active Substance: OMEPRAZOLE MAGNESIUM
  2. CLINDAMYCIN [Suspect]
     Active Substance: CLINDAMYCIN\CLINDAMYCIN PHOSPHATE
     Indication: EAR INFECTION
     Dosage: 1 PILL THREE TIMES DAILY TAKEN BY MOUTH
     Route: 048
  3. METROPROL [Concomitant]
  4. MUSINEX DM [Concomitant]
     Active Substance: DEXTROMETHORPHAN HYDROBROMIDE\GUAIFENESIN

REACTIONS (7)
  - Asthenia [None]
  - Abdominal pain [None]
  - Heart rate increased [None]
  - Headache [None]
  - Malaise [None]
  - Dehydration [None]
  - Clostridium difficile colitis [None]

NARRATIVE: CASE EVENT DATE: 20160129
